FAERS Safety Report 26140045 (Version 1)
Quarter: 2025Q4

REPORT INFORMATION
  Report Type: Spontaneous
  Country: GB (occurrence: GB)
  Receive Date: 20251210
  Receipt Date: 20251210
  Transmission Date: 20260117
  Serious: Yes (Other)
  Sender: CIPLA
  Company Number: GB-MHRA-MED-202511261557452790-GTWRK

PATIENT

DRUGS (2)
  1. ALBUTEROL [Suspect]
     Active Substance: ALBUTEROL
     Indication: Adverse drug reaction
     Dosage: UNK (2.5MG/2.5ML VIA NEBULISER WITHIN CLINICAL ENVIRONMENT FOR BRONCHODILATOR RESPONSIVENESS TEST)
     Route: 065
     Dates: start: 20251030, end: 20251030
  2. ALBUTEROL [Suspect]
     Active Substance: ALBUTEROL
     Indication: Respiratory therapy

REACTIONS (2)
  - Sensory loss [Recovered/Resolved]
  - Dizziness [Recovered/Resolved]

NARRATIVE: CASE EVENT DATE: 20251030
